FAERS Safety Report 12682731 (Version 1)
Quarter: 2016Q3

REPORT INFORMATION
  Report Type: Spontaneous
  Country: GB (occurrence: GB)
  Receive Date: 20160825
  Receipt Date: 20160825
  Transmission Date: 20161109
  Serious: Yes (Other)
  Sender: FDA-Public Use
  Company Number: GB-TEVA-685528ACC

PATIENT
  Age: 16 Year

DRUGS (1)
  1. HALOPERIDOL. [Suspect]
     Active Substance: HALOPERIDOL
     Dates: start: 20160616

REACTIONS (2)
  - Dysphagia [Unknown]
  - Swollen tongue [Unknown]

NARRATIVE: CASE EVENT DATE: 20160616
